FAERS Safety Report 6965095-X (Version None)
Quarter: 2010Q3

REPORT INFORMATION
  Report Type: 
  Country: None (occurrence: None)
  Receive Date: 20100903
  Receipt Date: 20100823
  Transmission Date: 20110219
  Serious: No
  Sender: FDA-Public Use
  Company Number: US-BAYER-201031872NA

PATIENT
  Age: 70 Year
  Sex: Female
  Weight: 78 kg

DRUGS (4)
  1. MAGNEVIST [Suspect]
     Indication: NUCLEAR MAGNETIC RESONANCE IMAGING
     Dosage: TOTAL DAILY DOSE: 16 ML  UNIT DOSE: 100 ML
     Route: 042
     Dates: start: 20100823, end: 20100823
  2. VALIUM [Concomitant]
     Indication: PREMEDICATION
     Dosage: TOTAL DAILY DOSE: 10 MG
     Route: 030
     Dates: start: 20100823, end: 20100823
  3. METFORMIN [Concomitant]
  4. GLYBURIDE [Concomitant]

REACTIONS (2)
  - PRURITUS [None]
  - URTICARIA [None]
